FAERS Safety Report 7168200-8 (Version None)
Quarter: 2010Q4

REPORT INFORMATION
  Report Type: 
  Country: None (occurrence: None)
  Receive Date: 20101216
  Receipt Date: 20101214
  Transmission Date: 20110411
  Serious: Yes (Hospitalization, Other)
  Sender: FDA-Public Use
  Company Number: US-PFIZER INC-2010013194

PATIENT
  Sex: Female

DRUGS (8)
  1. CELECOXIB [Suspect]
     Dosage: UNK
  2. ENBREL [Suspect]
     Indication: PSORIASIS
     Dosage: 50 MG, 2 IN 1 WEEK
     Dates: start: 20090601, end: 20091001
  3. LORATADINE [Concomitant]
  4. MULTI-VITAMINS [Concomitant]
  5. CLOBETASOL [Concomitant]
     Route: 061
  6. LEVOTHYROXINE SODIUM [Concomitant]
  7. GABAPENTIN [Concomitant]
  8. CALCIPOTRIENE [Concomitant]

REACTIONS (2)
  - DRUG INTERACTION [None]
  - PULMONARY EMBOLISM [None]
